FAERS Safety Report 4498659-6 (Version None)
Quarter: 2004Q4

REPORT INFORMATION
  Report Type: 
  Country: None (occurrence: None)
  Receive Date: 20041108
  Receipt Date: 20041028
  Transmission Date: 20050328
  Serious: Yes (Other)
  Sender: FDA-Public Use
  Company Number: 2004240954US

PATIENT
  Age: 51 Year
  Sex: Female

DRUGS (2)
  1. BEXTRA [Suspect]
     Indication: RHEUMATOID ARTHRITIS
     Dosage: 20 MG, QD, ORAL
     Route: 048
     Dates: start: 20041001, end: 20041001
  2. METHOTREXATE [Concomitant]

REACTIONS (1)
  - STEVENS-JOHNSON SYNDROME [None]
